FAERS Safety Report 4294230-X (Version None)
Quarter: 2004Q1

REPORT INFORMATION
  Report Type: 
  Country: None (occurrence: None)
  Receive Date: 20040211
  Receipt Date: 20040128
  Transmission Date: 20041129
  Serious: Yes (Other)
  Sender: FDA-Public Use
  Company Number: 204454

PATIENT
  Sex: Male

DRUGS (2)
  1. RITUXAN [Suspect]
     Indication: CHRONIC LYMPHOCYTIC LEUKAEMIA
     Dosage: INTRAVENOUS
     Route: 042
  2. CHEMOTHERAPY (ANTINEOPLASTIC AGENT NOS) [Concomitant]

REACTIONS (2)
  - RENAL IMPAIRMENT [None]
  - SCLERODERMA [None]
